FAERS Safety Report 15749042 (Version 1)
Quarter: 2018Q4

REPORT INFORMATION
  Report Type: Spontaneous
  Country: US (occurrence: US)
  Receive Date: 20181219
  Receipt Date: 20181219
  Transmission Date: 20190205
  Serious: Yes (Other)
  Sender: FDA-Public Use
  Company Number: None

PATIENT
  Age: 36 Year
  Sex: Male
  Weight: 92.99 kg

DRUGS (1)
  1. ABILIFY MAINTENA [Suspect]
     Active Substance: ARIPIPRAZOLE
     Indication: SCHIZOAFFECTIVE DISORDER BIPOLAR TYPE
     Dosage: ?          OTHER FREQUENCY:EVERY 4 WKS ;?
     Route: 030
     Dates: start: 20180326, end: 20180828

REACTIONS (2)
  - Obsessive thoughts [None]
  - Libido increased [None]

NARRATIVE: CASE EVENT DATE: 20180912
